FAERS Safety Report 4642421-8 (Version None)
Quarter: 2005Q2

REPORT INFORMATION
  Report Type: 
  Country: None (occurrence: None)
  Receive Date: 20050422
  Receipt Date: 20041117
  Transmission Date: 20051028
  Serious: Yes (Other)
  Sender: FDA-Public Use
  Company Number: DE-ROCHE-386409

PATIENT
  Age: 59 Year
  Sex: Male
  Weight: 64 kg

DRUGS (5)
  1. PEG-INTERFERON ALFA 2A (RO 25-8310) [Suspect]
     Route: 058
     Dates: start: 20041109
  2. RIBAVIRIN [Suspect]
     Route: 048
     Dates: start: 20041109
  3. METOPROLOL TARTRATE [Concomitant]
     Dates: start: 20040828
  4. PANTOPRAZOL [Concomitant]
     Dates: start: 20040921
  5. PARACETAMOL [Concomitant]
     Dates: start: 20040921

REACTIONS (2)
  - FACIAL PALSY [None]
  - TINNITUS [None]
